FAERS Safety Report 9411541 (Version 1)
Quarter: 2013Q3

REPORT INFORMATION
  Report Type: Report from Study
  Country: DE (occurrence: DE)
  Receive Date: 20130722
  Receipt Date: 20130722
  Transmission Date: 20140515
  Serious: Yes (Hospitalization)
  Sender: FDA-Public Use
  Company Number: DE-ASTELLAS-2013US007546

PATIENT
  Age: 64 Year
  Sex: Male

DRUGS (4)
  1. ERLOTINIB TABLET [Suspect]
     Indication: PANCREATIC CARCINOMA
     Dosage: 100 MG, UID/QD
     Route: 048
     Dates: start: 20120917
  2. GEMCITABINE /01215702/ [Suspect]
     Indication: PANCREATIC CARCINOMA
     Dosage: 1000 MG, WEEKLY
     Route: 042
     Dates: start: 20120912
  3. GRANISETRON                        /01178102/ [Concomitant]
     Indication: VOMITING
     Dosage: 2 MG, 1 IN 1 WK
     Route: 048
     Dates: start: 20120917
  4. PARACETAMOL [Concomitant]
     Indication: PAIN PROPHYLAXIS
     Dosage: 1 G, UID/QD
     Route: 048
     Dates: start: 20120917

REACTIONS (2)
  - General physical health deterioration [Unknown]
  - Pyrexia [Recovered/Resolved]
